FAERS Safety Report 6687118-8 (Version None)
Quarter: 2010Q2

REPORT INFORMATION
  Report Type: 
  Country: None (occurrence: None)
  Receive Date: 20100419
  Receipt Date: 20100407
  Transmission Date: 20101027
  Serious: Yes (Life-Threatening, Hospitalization, Disabling)
  Sender: FDA-Public Use
  Company Number: GB-WATSON-2010-04882

PATIENT

DRUGS (11)
  1. DEXAMETHASONE ACETATE [Suspect]
     Indication: ANAESTHESIA
     Dosage: 8 MG
     Route: 042
  2. FENTANYL CITRATE [Suspect]
     Indication: ANAESTHESIA
     Dosage: 0.05 MG
     Route: 042
  3. ATRACURIUM BESYLATE [Suspect]
     Indication: ANAESTHESIA
     Dosage: 20 MG
     Route: 042
  4. MORPHINE SULFATE INJ [Suspect]
     Indication: ANALGESIC THERAPY
     Dosage: 3 MG
     Route: 042
  5. ADRENALINE                         /00003901/ [Suspect]
     Indication: ANALGESIC THERAPY
     Dosage: 1:200 000 DILUTION
     Route: 065
  6. BUPIVACAINE HCL [Suspect]
     Indication: ANALGESIC THERAPY
     Dosage: 5 UNK, UNK
     Route: 065
  7. DESFLURANE [Suspect]
     Indication: ANAESTHESIA
     Route: 065
  8. NITROUS OXIDE [Suspect]
     Indication: ANAESTHESIA
     Route: 065
  9. ONDANSETRON [Suspect]
     Indication: ANAESTHESIA
     Dosage: 3 MG, UNK
     Route: 042
  10. PARACETAMOL [Suspect]
     Indication: ANALGESIC THERAPY
     Dosage: 600 MG, UNK
     Route: 042
  11. PROPOFOL [Suspect]
     Indication: ANAESTHESIA
     Dosage: 100 MG, UNK
     Route: 042

REACTIONS (11)
  - AREFLEXIA [None]
  - ASTHENIA [None]
  - BRAIN STEM HAEMORRHAGE [None]
  - DYSARTHRIA [None]
  - DYSPHAGIA [None]
  - GRIP STRENGTH DECREASED [None]
  - HYPOXIA [None]
  - OXYGEN SATURATION DECREASED [None]
  - RESPIRATION ABNORMAL [None]
  - RESPIRATORY ACIDOSIS [None]
  - RESPIRATORY DISTRESS [None]
